FAERS Safety Report 6032224-4 (Version None)
Quarter: 2009Q1

REPORT INFORMATION
  Report Type: 
  Country: None (occurrence: None)
  Receive Date: 20090108
  Receipt Date: 20090107
  Transmission Date: 20090719
  Serious: No
  Sender: FDA-Public Use
  Company Number: US-B.I. PHARMACEUTICALS,INC./RIDGEFIELD-2009-BP-00134BP

PATIENT
  Sex: Male

DRUGS (1)
  1. FLOMAX [Suspect]
     Dosage: .4MG
     Route: 048

REACTIONS (4)
  - DIZZINESS [None]
  - EJACULATION FAILURE [None]
  - MUSCULOSKELETAL PAIN [None]
  - MYALGIA [None]
